FAERS Safety Report 7654016-2 (Version None)
Quarter: 2011Q3

REPORT INFORMATION
  Report Type: 
  Country: None (occurrence: None)
  Receive Date: 20110803
  Receipt Date: 20110729
  Transmission Date: 20111222
  Serious: Yes (Other)
  Sender: FDA-Public Use
  Company Number: US-BAYER-2011-010191

PATIENT
  Age: 39 Year
  Sex: Female

DRUGS (3)
  1. INTERFERON BETA-1B [Suspect]
     Dosage: 8 MIU, QOD
     Route: 058
     Dates: end: 20110716
  2. INTERFERON BETA-1B [Suspect]
     Indication: MULTIPLE SCLEROSIS
     Dosage: 2 MIU, QOD
     Route: 058
     Dates: start: 20110119
  3. INTERFERON BETA-1B [Suspect]
     Dosage: 2 MIU, QOD
     Route: 058
     Dates: start: 20110728

REACTIONS (21)
  - HYPOAESTHESIA [None]
  - TACHYCARDIA [None]
  - PALPITATIONS [None]
  - HEART RATE INCREASED [None]
  - CHILLS [None]
  - DYSPNOEA [None]
  - DECREASED APPETITE [None]
  - VASCULAR INJURY [None]
  - INJECTION SITE HAEMORRHAGE [None]
  - HYPERHIDROSIS [None]
  - INFLUENZA LIKE ILLNESS [None]
  - FEELING HOT [None]
  - PARAESTHESIA [None]
  - PANIC ATTACK [None]
  - FLUSHING [None]
  - PRURITUS [None]
  - INJECTION SITE HAEMATOMA [None]
  - INJECTION SITE PAIN [None]
  - NERVOUSNESS [None]
  - ANXIETY DISORDER [None]
  - PAIN [None]
